FAERS Safety Report 6929433 (Version 4)
Quarter: 2013Q1

REPORT INFORMATION
  Report Type: Report from Study
  Country: JP (occurrence: JP)
  Receive Date: 20090306
  Receipt Date: 20130322
  Transmission Date: 20140127
  Serious: Yes (Death, Other)
  Sender: FDA-Public Use
  Company Number: JP-BRISTOL-MYERS SQUIBB COMPANY-14453237

PATIENT
  Age: 75 Year
  Sex: Male
  Weight: 45 kg

DRUGS (5)
  1. ERBITUX SOLN FOR INF 5MG/ML [Suspect]
     Indication: COLORECTAL CANCER RECURRENT
     Dosage: 2ND INF:12OCT,3RD-21OCT,4-28OCT,5TH-04NOV,6-11NOV,7-18NOV,8-25NOV,9-02DEC,10-09DEC08,6OCT08:500MG.
     Route: 042
     Dates: start: 20081006, end: 20081209
  2. IRINOTECAN HCL [Concomitant]
     Indication: COLORECTAL CANCER RECURRENT
     Dosage: 150 MG 1 IN 2 WK
     Route: 041
     Dates: start: 20081021, end: 20081104
  3. POLARAMINE [Concomitant]
     Indication: PREMEDICATION
     Route: 042
     Dates: start: 20081006, end: 20081209
  4. DECADRON [Concomitant]
     Indication: PREMEDICATION
     Route: 042
     Dates: start: 20081006, end: 20081209
  5. GRANISETRON HCL [Concomitant]
     Indication: ANTIEMETIC SUPPORTIVE CARE
     Route: 042
     Dates: start: 20081006, end: 20081209

REACTIONS (3)
  - Malignant neoplasm progression [Fatal]
  - Dry skin [Recovered/Resolved]
  - Decreased appetite [Not Recovered/Not Resolved]
